FAERS Safety Report 16230348 (Version 2)
Quarter: 2019Q2

REPORT INFORMATION
  Report Type: Spontaneous
  Country: US (occurrence: US)
  Receive Date: 20190423
  Receipt Date: 20190615
  Transmission Date: 20190711
  Serious: No
  Sender: FDA-Public Use
  Company Number: US-009507513-1904USA002941

PATIENT
  Age: 90 Year
  Sex: Female
  Weight: 62.6 kg

DRUGS (4)
  1. KEYTRUDA [Suspect]
     Active Substance: PEMBROLIZUMAB
     Indication: NATURAL KILLER-CELL LYMPHOBLASTIC LYMPHOMA
     Dosage: 200 MILLIGRAM, Q21DAYS(Q3W)
     Route: 042
     Dates: start: 20180126
  2. KEYTRUDA [Suspect]
     Active Substance: PEMBROLIZUMAB
     Dosage: 200 MILLIGRAM, Q21DAYS(Q3W)
     Route: 042
     Dates: start: 20180309
  3. KEYTRUDA [Suspect]
     Active Substance: PEMBROLIZUMAB
     Dosage: 200 MILLIGRAM, Q21DAYS(Q3W)
     Route: 042
     Dates: end: 20180511
  4. KEYTRUDA [Suspect]
     Active Substance: PEMBROLIZUMAB
     Dosage: 200 MILLIGRAM, Q21DAYS(Q3W)
     Route: 042
     Dates: start: 20180216

REACTIONS (2)
  - Product use in unapproved indication [Unknown]
  - Hypophosphataemia [Recovered/Resolved]

NARRATIVE: CASE EVENT DATE: 20180212
